FAERS Safety Report 23233252 (Version 1)
Quarter: 2023Q4

REPORT INFORMATION
  Report Type: Spontaneous
  Country: IE (occurrence: IE)
  Receive Date: 20231128
  Receipt Date: 20231128
  Transmission Date: 20240110
  Serious: Yes (Other)
  Sender: FDA-Public Use
  Company Number: IE-STRIDES ARCOLAB LIMITED-2023SP017453

PATIENT
  Sex: Male

DRUGS (5)
  1. PROPRANOLOL [Suspect]
     Active Substance: PROPRANOLOL HYDROCHLORIDE
     Indication: Product used for unknown indication
     Dosage: UNK (MOTHER RECEIVED 80?MG/DAY)
     Route: 064
  2. CARBIMAZOLE [Suspect]
     Active Substance: CARBIMAZOLE
     Indication: Product used for unknown indication
     Dosage: UNK (MOTHER RECEIVED 30MG THEE TIMES A DAY)
     Route: 064
  3. PROPYLTHIOURACIL [Suspect]
     Active Substance: PROPYLTHIOURACIL
     Indication: Product used for unknown indication
     Dosage: UNK
     Route: 064
  4. LABETALOL [Suspect]
     Active Substance: LABETALOL\LABETALOL HYDROCHLORIDE
     Indication: Product used for unknown indication
     Dosage: UNK
     Route: 064
  5. IODINE\POTASSIUM IODIDE [Suspect]
     Active Substance: IODINE\POTASSIUM IODIDE
     Indication: Product used for unknown indication
     Dosage: UNK
     Route: 064

REACTIONS (2)
  - Premature baby [Unknown]
  - Foetal exposure during pregnancy [Unknown]
